FAERS Safety Report 19208820 (Version 1)
Quarter: 2021Q2

REPORT INFORMATION
  Report Type: Spontaneous
  Country: IN (occurrence: IN)
  Receive Date: 20210504
  Receipt Date: 20210504
  Transmission Date: 20210717
  Serious: Yes (Other)
  Sender: FDA-Public Use
  Company Number: IN-INSUD PHARMA-2104IN00487

PATIENT

DRUGS (7)
  1. NUVESSA [Suspect]
     Active Substance: METRONIDAZOLE
     Indication: PRODUCT USED FOR UNKNOWN INDICATION
     Dosage: 500 MILLIGRAM INFUSION STAT
     Route: 042
  2. DNS [Concomitant]
     Dosage: 500 MILLILITER THIRD HOURLY
  3. DICYCLOMINE [Concomitant]
     Active Substance: DICYCLOMINE HYDROCHLORIDE
     Dosage: 8 MILLIGRAM, SINGLE, STAT
     Route: 042
  4. PHENYTOIN. [Interacting]
     Active Substance: PHENYTOIN
     Dosage: 100 MG ON DAY OF ADMISSION
     Route: 042
  5. PHENYTOIN. [Interacting]
     Active Substance: PHENYTOIN
     Dosage: 400 MG IN 250 ML NORMAL SALINE INFUSION FOR 1 HOUR STAT ON DAY OF ADMISSION
     Route: 042
  6. PHENYTOIN. [Interacting]
     Active Substance: PHENYTOIN
     Indication: SEIZURE
     Dosage: 100 MG ON 8TH HOURLY BASIS FOR NEXT 2 DAYS
     Route: 042
  7. RANITIDINE. [Interacting]
     Active Substance: RANITIDINE
     Indication: PRODUCT USED FOR UNKNOWN INDICATION
     Dosage: 50 MILLIGRAM 12TH HOURLY
     Route: 042

REACTIONS (5)
  - Seizure [Recovered/Resolved]
  - Drug interaction [Recovered/Resolved]
  - Toxicity to various agents [Recovered/Resolved]
  - Headache [Recovered/Resolved]
  - Disorientation [Recovered/Resolved]
